FAERS Safety Report 11539655 (Version 1)
Quarter: 2015Q3

REPORT INFORMATION
  Report Type: Spontaneous
  Country: BE (occurrence: BE)
  Receive Date: 20150923
  Receipt Date: 20150923
  Transmission Date: 20151125
  Serious: Yes (Disabling)
  Sender: FDA-Public Use
  Company Number: PHHY2015BE113054

PATIENT
  Age: 29 Year
  Sex: Female

DRUGS (2)
  1. GILENYA [Suspect]
     Active Substance: FINGOLIMOD HYDROCHLORIDE
     Indication: MULTIPLE SCLEROSIS
     Dosage: 0.5 MG, QD
     Route: 048
     Dates: start: 2012
  2. DESO 30 [Concomitant]
     Indication: CONTRACEPTION
     Dosage: 0.18 MG, ETHINYLESTRADIOL 0.03 MG/ DESOGESTREL 0.15 MG
     Route: 065

REACTIONS (11)
  - Anogenital warts [Unknown]
  - Asthenia [Unknown]
  - Chronic sinusitis [Unknown]
  - Somnolence [Unknown]
  - Musculoskeletal stiffness [Unknown]
  - Alopecia [Unknown]
  - Fatigue [Unknown]
  - Vision blurred [Unknown]
  - Weight decreased [Unknown]
  - Bronchitis chronic [Unknown]
  - Papilloma viral infection [Unknown]
